FAERS Safety Report 26040513 (Version 1)
Quarter: 2025Q4

REPORT INFORMATION
  Report Type: Spontaneous
  Country: US (occurrence: None)
  Receive Date: 20251112
  Receipt Date: 20251112
  Transmission Date: 20260118
  Serious: Yes (Death)
  Sender: FDA-CTU
  Company Number: None

PATIENT
  Sex: Female

DRUGS (11)
  1. BOTOX [Suspect]
     Active Substance: ONABOTULINUMTOXINA
     Dosage: OTHER QUANTITY : AS DIRECTED;?FREQ: ADMINISTER AS DIRECTED TQ BE ADMINISTERED IN PRESCRIBERS OFFICE WITH DR. KIMBERLY?
     Dates: start: 20230801
  2. ASPIRIN [Concomitant]
     Active Substance: ASPIRIN
  3. BUSPIRONE [Concomitant]
     Active Substance: BUSPIRONE HYDROCHLORIDE
  4. D2000 ULTRA [Concomitant]
  5. LISINOPRIL [Concomitant]
     Active Substance: LISINOPRIL
  6. LORAZEPAM [Concomitant]
     Active Substance: LORAZEPAM
  7. METOPROL SUC [Concomitant]
  8. MIRTAZAPINE [Concomitant]
     Active Substance: MIRTAZAPINE
  9. NITROFURANTOIN [Concomitant]
     Active Substance: NITROFURANTOIN
  10. PANTOPRAZOLE [Concomitant]
     Active Substance: PANTOPRAZOLE
  11. SERTRALINE [Concomitant]
     Active Substance: SERTRALINE HYDROCHLORIDE

REACTIONS (1)
  - Death [None]
